FAERS Safety Report 5215898-7 (Version None)
Quarter: 2007Q1

REPORT INFORMATION
  Report Type: 
  Country: None (occurrence: None)
  Receive Date: 20070123
  Receipt Date: 20070112
  Transmission Date: 20070707
  Serious: Yes (Other)
  Sender: FDA-Public Use
  Company Number: GB-ROCHE-479348

PATIENT
  Age: 20 Year
  Sex: Female
  Weight: 50 kg

DRUGS (9)
  1. MYCOPHENOLATE MOFETIL [Suspect]
     Indication: IMMUNOSUPPRESSION
     Route: 065
  2. ETONOGESTREL [Interacting]
     Indication: CONTRACEPTION
     Route: 065
     Dates: start: 20060801, end: 20060901
  3. RAPAMUNE [Interacting]
     Indication: IMMUNOSUPPRESSION
     Route: 048
     Dates: start: 20051206, end: 20060301
  4. RAPAMUNE [Interacting]
     Route: 048
     Dates: start: 20060101, end: 20060101
  5. RAPAMUNE [Interacting]
     Route: 048
     Dates: start: 20060501
  6. AMLODIPINE [Concomitant]
     Route: 048
     Dates: start: 20060801
  7. PHENOXYMETHYLPENICILLIN [Concomitant]
     Route: 048
  8. PREDNISOLONE [Concomitant]
     Route: 048
     Dates: start: 20051206
  9. RANITIDINE [Concomitant]
     Route: 048
     Dates: start: 20061206

REACTIONS (3)
  - BLOOD CREATININE INCREASED [None]
  - DRUG INTERACTION [None]
  - RENAL IMPAIRMENT [None]
